FAERS Safety Report 8062888-5 (Version None)
Quarter: 2012Q1

REPORT INFORMATION
  Report Type: 
  Country: None (occurrence: None)
  Receive Date: 20120123
  Receipt Date: 20120123
  Transmission Date: 20120608
  Serious: Yes (Hospitalization, Disabling, Other)
  Sender: FDA-Public Use
  Company Number: None

PATIENT
  Age: 36 Year
  Sex: Female
  Weight: 49.895 kg

DRUGS (1)
  1. DAYPRO [Suspect]
     Indication: ANTIINFLAMMATORY THERAPY
     Dosage: 2 TABLETS
     Route: 048
     Dates: start: 20111221, end: 20111230

REACTIONS (4)
  - ULCER HAEMORRHAGE [None]
  - EPISTAXIS [None]
  - CHEST PAIN [None]
  - MALAISE [None]
